FAERS Safety Report 7595534-5 (Version None)
Quarter: 2011Q3

REPORT INFORMATION
  Report Type: 
  Country: None (occurrence: None)
  Receive Date: 20110707
  Receipt Date: 20110615
  Transmission Date: 20111222
  Serious: Yes (Hospitalization)
  Sender: FDA-Public Use
  Company Number: US-GLAXOSMITHKLINE-A0807500A

PATIENT
  Age: 51 Year
  Sex: Male
  Weight: 108.6 kg

DRUGS (7)
  1. METFORMIN HCL [Concomitant]
  2. DILTIAZEM [Concomitant]
  3. AVANDIA [Suspect]
     Indication: DIABETES MELLITUS
     Dosage: 4MG PER DAY
     Route: 048
     Dates: start: 20060812, end: 20070101
  4. GEMFIBROZIL [Concomitant]
  5. BENAZEPRIL HYDROCHLORIDE [Concomitant]
  6. INSULIN [Concomitant]
  7. GLYBURIDE [Concomitant]

REACTIONS (2)
  - MYOCARDIAL INFARCTION [None]
  - CORONARY ARTERY DISEASE [None]
